FAERS Safety Report 16694413 (Version 1)
Quarter: 2019Q3

REPORT INFORMATION
  Report Type: Spontaneous
  Country: US (occurrence: US)
  Receive Date: 20190812
  Receipt Date: 20190812
  Transmission Date: 20191004
  Serious: No
  Sender: FDA-Public Use
  Company Number: PHEH2019US032710

PATIENT
  Sex: Female

DRUGS (1)
  1. FAMCICLOVIR. [Suspect]
     Active Substance: FAMCICLOVIR
     Indication: HERPES VIRUS INFECTION
     Dosage: UNK
     Route: 065

REACTIONS (2)
  - Orthostatic hypotension [Unknown]
  - Malaise [Unknown]
